FAERS Safety Report 11697482 (Version 1)
Quarter: 2015Q4

REPORT INFORMATION
  Report Type: Other
  Country: US (occurrence: US)
  Receive Date: 20151104
  Receipt Date: 20151104
  Transmission Date: 20160304
  Serious: Yes (Other)
  Sender: FDA-Public Use
  Company Number: US-SHIRE-US201513588

PATIENT
  Sex: Male
  Weight: 99.77 kg

DRUGS (3)
  1. FIRAZYR [Suspect]
     Active Substance: ICATIBANT ACETATE
     Indication: HEREDITARY ANGIOEDEMA
     Dosage: 30 MG, AS REQ^D
     Route: 058
  2. LOSARTAN POTASSIUM. [Concomitant]
     Active Substance: LOSARTAN POTASSIUM
     Indication: PRODUCT USED FOR UNKNOWN INDICATION
     Dosage: 100 MG, 1X/DAY:QD
     Route: 048
     Dates: start: 20130722
  3. LEVAQUIN [Concomitant]
     Active Substance: LEVOFLOXACIN
     Indication: PRODUCT USED FOR UNKNOWN INDICATION
     Dosage: 250 MG, UNKNOWN (AS DIRECTED BY MOUTH)
     Route: 048
     Dates: start: 20151014

REACTIONS (1)
  - Pneumonia [Unknown]
